FAERS Safety Report 19753947 (Version 3)
Quarter: 2021Q4

REPORT INFORMATION
  Report Type: Report from Study
  Country: CA (occurrence: CA)
  Receive Date: 20210827
  Receipt Date: 20211027
  Transmission Date: 20220303
  Serious: Yes (Hospitalization)
  Sender: FDA-Public Use
  Company Number: CA-JNJFOC-20210845207

PATIENT
  Age: 12 Year
  Sex: Male
  Weight: 30.2 kg

DRUGS (2)
  1. REMICADE [Suspect]
     Active Substance: INFLIXIMAB
     Indication: Crohn^s disease
     Dosage: FOLLOWED BY FEB-2021, ON 21-AUG-2021, THE PATIENT RECEIVED THE 67TH DOSE OF 700 MG OF INFLIXIMAB, RE
     Route: 042
     Dates: start: 20170307
  2. REMICADE [Suspect]
     Active Substance: INFLIXIMAB
     Route: 042

REACTIONS (3)
  - Crohn^s disease [Recovering/Resolving]
  - Gastrointestinal tube insertion [Unknown]
  - Drug level decreased [Unknown]

NARRATIVE: CASE EVENT DATE: 20210727
